FAERS Safety Report 7178469-1 (Version None)
Quarter: 2010Q4

REPORT INFORMATION
  Report Type: 
  Country: None (occurrence: None)
  Receive Date: 20101220
  Receipt Date: 20101213
  Transmission Date: 20110411
  Serious: Yes (Hospitalization)
  Sender: FDA-Public Use
  Company Number: SE-MERCK-1012SWE00005

PATIENT
  Age: 78 Year
  Sex: Female

DRUGS (12)
  1. SINEMET CR [Suspect]
     Indication: PARKINSONISM
     Route: 048
  2. BENSERAZIDE HYDROCHLORIDE AND LEVODOPA [Suspect]
     Indication: PARKINSONISM
     Route: 048
     Dates: end: 20101005
  3. AMANTADINE HYDROCHLORIDE [Suspect]
     Indication: PARKINSONISM
     Route: 048
     Dates: end: 20101005
  4. LACTULOSE [Concomitant]
     Route: 065
  5. STERCULIA [Concomitant]
     Route: 065
  6. AMITRIPTYLINE HYDROCHLORIDE [Concomitant]
     Route: 065
  7. WARFARIN SODIUM [Concomitant]
     Route: 065
  8. OXAZEPAM [Concomitant]
     Route: 065
  9. ACETAMINOPHEN AND CODEINE PHOSPHATE [Concomitant]
     Route: 065
  10. METOPROLOL SUCCINATE [Concomitant]
     Route: 065
  11. ZOLPIDEM TARTRATE [Concomitant]
     Route: 065
  12. BROMOCRIPTINE MESYLATE [Concomitant]
     Route: 065

REACTIONS (1)
  - CONFUSIONAL STATE [None]
